FAERS Safety Report 21521719 (Version 1)
Quarter: 2022Q4

REPORT INFORMATION
  Report Type: Spontaneous
  Country: US (occurrence: None)
  Receive Date: 20221028
  Receipt Date: 20221028
  Transmission Date: 20230113
  Serious: Yes (Other)
  Sender: FDA-Public Use
  Company Number: 2022A353156

PATIENT
  Age: 83 Year
  Sex: Female
  Weight: 62.6 kg

DRUGS (1)
  1. BRILINTA [Suspect]
     Active Substance: TICAGRELOR
     Indication: Stent placement
     Route: 048
     Dates: start: 201807

REACTIONS (6)
  - Pancreatic failure [Unknown]
  - Vomiting [Unknown]
  - Fatigue [Unknown]
  - Pancreatic disorder [Unknown]
  - Cholelithiasis [Unknown]
  - Angiopathy [Unknown]

NARRATIVE: CASE EVENT DATE: 20210101
